FAERS Safety Report 9272015 (Version 1)
Quarter: 2013Q2

REPORT INFORMATION
  Report Type: Spontaneous
  Country: US (occurrence: US)
  Receive Date: 20130506
  Receipt Date: 20130506
  Transmission Date: 20140414
  Serious: No
  Sender: FDA-Public Use
  Company Number: US-TEVA-402627USA

PATIENT
  Sex: Male
  Weight: 81.72 kg

DRUGS (4)
  1. PROAIR HFA [Suspect]
     Indication: BRONCHOSPASM
     Route: 055
     Dates: end: 201303
  2. PROAIR HFA [Suspect]
     Indication: DYSPNOEA
  3. LISINOPRIL [Concomitant]
     Indication: HYPERTENSION
  4. PRILOSEC [Concomitant]
     Indication: GASTROOESOPHAGEAL REFLUX DISEASE

REACTIONS (2)
  - Dyspnoea [Not Recovered/Not Resolved]
  - Chest discomfort [Not Recovered/Not Resolved]
